FAERS Safety Report 8773538 (Version 2)
Quarter: 2013Q4

REPORT INFORMATION
  Report Type: Spontaneous
  Country: CA (occurrence: CA)
  Receive Date: 20120907
  Receipt Date: 20131031
  Transmission Date: 20140711
  Serious: Yes (Disabling, Other)
  Sender: FDA-Public Use
  Company Number: CA-009507513-1206USA01560

PATIENT
  Age: 82 Year
  Sex: Female
  Weight: 100.3 kg

DRUGS (1)
  1. FOSAMAX [Suspect]
     Dosage: 70 MG, QW
     Route: 048
     Dates: start: 2005, end: 201110

REACTIONS (4)
  - Bone disorder [Not Recovered/Not Resolved]
  - Bone lesion [Not Recovered/Not Resolved]
  - Atypical femur fracture [Not Recovered/Not Resolved]
  - Stress fracture [Not Recovered/Not Resolved]
